FAERS Safety Report 9660487 (Version 2)
Quarter: 2013Q4

REPORT INFORMATION
  Report Type: Spontaneous
  Country: GB (occurrence: GB)
  Receive Date: 20131031
  Receipt Date: 20131127
  Transmission Date: 20140711
  Serious: Yes (Other)
  Sender: FDA-Public Use
  Company Number: GB-WATSON-2013-19797

PATIENT
  Age: 55 Year
  Sex: Female

DRUGS (2)
  1. TAMOXIFEN (UNKNOWN) [Suspect]
     Indication: HER-2 POSITIVE BREAST CANCER
     Dosage: UNK
     Route: 065
  2. HERCEPTIN [Suspect]
     Indication: HER-2 POSITIVE BREAST CANCER
     Dosage: UNK
     Route: 042

REACTIONS (8)
  - Immunodeficiency [Unknown]
  - Premature menopause [Unknown]
  - Alopecia [Unknown]
  - Madarosis [Unknown]
  - Rash [Unknown]
  - Feelings of worthlessness [Unknown]
  - Acne [Unknown]
  - Abnormal behaviour [Unknown]
